FAERS Safety Report 7945008-4 (Version None)
Quarter: 2011Q4

REPORT INFORMATION
  Report Type: 
  Country: None (occurrence: None)
  Receive Date: 20111129
  Receipt Date: 20111115
  Transmission Date: 20120403
  Serious: Yes (Hospitalization)
  Sender: FDA-Public Use
  Company Number: PHEH2011US06438

PATIENT
  Sex: Female
  Weight: 54.422 kg

DRUGS (7)
  1. ASPIRIN [Concomitant]
     Dosage: 8 MG, DAILY
     Route: 048
  2. XANAX [Concomitant]
     Dosage: 2 MG, QHS
     Route: 048
  3. TASIGNA [Suspect]
     Dosage: 300 MG, DAILY
     Route: 055
  4. CYMBALTA [Concomitant]
     Dosage: 60 MG, QHS
     Route: 048
  5. TASIGNA [Suspect]
     Indication: CHRONIC MYELOID LEUKAEMIA
     Dosage: 400 MG, BID
     Route: 048
     Dates: start: 20110912, end: 20110915
  6. FLOREXAL [Concomitant]
     Dosage: 10 MG, QHS
     Route: 048
  7. MULTI-VITAMINS [Concomitant]
     Dosage: UNK UKN, UNK

REACTIONS (11)
  - HOT FLUSH [None]
  - MALAISE [None]
  - MYALGIA [None]
  - NAUSEA [None]
  - WEIGHT DECREASED [None]
  - ADVERSE DRUG REACTION [None]
  - PYREXIA [None]
  - DIZZINESS [None]
  - FATIGUE [None]
  - HYPERHIDROSIS [None]
  - VOMITING [None]
